FAERS Safety Report 10186452 (Version 1)
Quarter: 2014Q2

REPORT INFORMATION
  Report Type: Spontaneous
  Country: US (occurrence: US)
  Receive Date: 20140521
  Receipt Date: 20140521
  Transmission Date: 20141212
  Serious: No
  Sender: FDA-Public Use
  Company Number: US-ASTRAZENECA-2013SE89926

PATIENT
  Age: 57 Year
  Sex: Male
  Weight: 81.6 kg

DRUGS (3)
  1. PULMICORT FLEXHALER [Suspect]
     Indication: ASTHMA
     Dosage: 90 MCG, 1 INHALATION TWO TIMES A DAY, ONCE IN THE MORNING AND ONCE IN THE AFTERNOON OR NIGHT
     Route: 055
     Dates: start: 2009
  2. PULMICORT FLEXHALER [Suspect]
     Indication: ASTHMA
     Dosage: AS NEEDED
     Route: 055
  3. XOPENEX [Concomitant]
     Indication: INHALATION THERAPY
     Dosage: 2 PUFFS Q6H
     Route: 055

REACTIONS (5)
  - Asthma [Not Recovered/Not Resolved]
  - Malaise [Not Recovered/Not Resolved]
  - Pulmonary congestion [Not Recovered/Not Resolved]
  - Device misuse [Unknown]
  - Intentional product misuse [Not Recovered/Not Resolved]
